FAERS Safety Report 9829733 (Version 1)
Quarter: 2014Q1

REPORT INFORMATION
  Report Type: Spontaneous
  Country: JP (occurrence: JP)
  Receive Date: 20140120
  Receipt Date: 20140120
  Transmission Date: 20141002
  Serious: Yes (Other)
  Sender: FDA-Public Use
  Company Number: JP-ROCHE-1334063

PATIENT
  Age: 12 Year
  Sex: Male

DRUGS (2)
  1. CELLCEPT [Suspect]
     Indication: CHRONIC GRAFT VERSUS HOST DISEASE
     Dosage: DOSAGE IS UNCERTAIN.
     Route: 048
  2. METHYLPREDNISOLONE [Concomitant]
     Dosage: DOSAGE IS UNCERTAIN.
     Route: 048

REACTIONS (3)
  - Small intestine ulcer [Unknown]
  - Small intestinal obstruction [Unknown]
  - Off label use [Unknown]
